FAERS Safety Report 18667314 (Version 3)
Quarter: 2021Q1

REPORT INFORMATION
  Report Type: Spontaneous
  Country: US (occurrence: US)
  Receive Date: 20201228
  Receipt Date: 20210316
  Transmission Date: 20210419
  Serious: No
  Sender: FDA-Public Use
  Company Number: NVSC2020US334741

PATIENT
  Age: 64 Year
  Sex: Female

DRUGS (4)
  1. KESIMPTA [Suspect]
     Active Substance: OFATUMUMAB
     Dosage: UNK
     Route: 065
     Dates: start: 20201213
  2. KESIMPTA [Suspect]
     Active Substance: OFATUMUMAB
     Indication: MULTIPLE SCLEROSIS
     Dosage: 20 MG, QMO(SUBCUTANEOUS ? BENEATH THE SKIN)
     Route: 058
     Dates: start: 20201206
  3. KESIMPTA [Suspect]
     Active Substance: OFATUMUMAB
     Dosage: 20 MG, QMO
     Route: 065
     Dates: start: 20201204
  4. BENADRYL [Concomitant]
     Active Substance: DIPHENHYDRAMINE HYDROCHLORIDE
     Indication: PRODUCT USED FOR UNKNOWN INDICATION
     Dosage: UNK
     Route: 065

REACTIONS (8)
  - Limb discomfort [Recovering/Resolving]
  - Gait disturbance [Recovering/Resolving]
  - Peroneal nerve palsy [Recovering/Resolving]
  - Headache [Recovered/Resolved]
  - Oropharyngeal pain [Recovering/Resolving]
  - Oropharyngeal pain [Recovered/Resolved]
  - Heart rate increased [Not Recovered/Not Resolved]
  - Headache [Recovered/Resolved]

NARRATIVE: CASE EVENT DATE: 20200106
